FAERS Safety Report 18834127 (Version 2)
Quarter: 2025Q2

REPORT INFORMATION
  Report Type: Report from Study
  Country: FI (occurrence: FI)
  Receive Date: 20210203
  Receipt Date: 20250628
  Transmission Date: 20250716
  Serious: Yes (Other)
  Sender: AUROBINDO
  Company Number: FI-GLAXOSMITHKLINE-FI2021GSK013914

PATIENT
  Age: 59 Year
  Sex: Male

DRUGS (3)
  1. OLANZAPINE [Suspect]
     Active Substance: OLANZAPINE
     Indication: Schizophrenia
     Route: 065
  2. LITHIUM [Suspect]
     Active Substance: LITHIUM
     Indication: Schizophrenia
     Route: 065
  3. VALPROATE [Suspect]
     Active Substance: VALPROIC ACID
     Indication: Schizophrenia
     Route: 065

REACTIONS (5)
  - Parkinson^s disease [Unknown]
  - Tremor [Unknown]
  - Bradykinesia [Unknown]
  - Muscle rigidity [Unknown]
  - Parkinsonism [Unknown]
